FAERS Safety Report 4816248-8 (Version None)
Quarter: 2005Q4

REPORT INFORMATION
  Report Type: 
  Country: None (occurrence: None)
  Receive Date: 20051028
  Receipt Date: 20051017
  Transmission Date: 20060501
  Serious: Yes (Hospitalization)
  Sender: FDA-Public Use
  Company Number: 2005RR-00976

PATIENT
  Age: 75 Year
  Sex: 0

DRUGS (15)
  1. IBUPROFEN TABLETS [Suspect]
     Dosage: 400 , TID, ORAL
     Route: 048
     Dates: start: 20050702, end: 20050711
  2. ALENDRONATE (ALENDRONIC ACID) [Suspect]
     Indication: PROPHYLAXIS
     Dosage: 70 MG, 1/WEEK, ORAL
     Route: 048
     Dates: end: 20050714
  3. PREDNISOLONE [Suspect]
     Dosage: 40 MG, QD
     Dates: start: 20050709, end: 20050713
  4. PHENOBARBITONE [Concomitant]
  5. MYSOLINE [Concomitant]
  6. TIOTROPIUM BROMIDE [Concomitant]
  7. SALBUTAMOL TABLETS BP (SALBUTAMOL) [Concomitant]
  8. ORAMORPH SR [Concomitant]
  9. QUININE SULPHATE [Concomitant]
  10. ADCAL-D3 [Concomitant]
  11. SYMBICORT [Concomitant]
  12. PARACETAMOL TABLETS BP (PARACETAMOL) [Concomitant]
  13. LACTULOSE [Concomitant]
  14. ENOXAPARIN SODIUM [Concomitant]
  15. LANSOPRAZOLE [Concomitant]

REACTIONS (2)
  - OESOPHAGEAL ULCER [None]
  - REFLUX OESOPHAGITIS [None]
